FAERS Safety Report 5569242-6 (Version None)
Quarter: 2007Q4

REPORT INFORMATION
  Report Type: 
  Country: None (occurrence: None)
  Receive Date: 20071220
  Receipt Date: 20070920
  Transmission Date: 20080405
  Serious: No
  Sender: FDA-Public Use
  Company Number: A0683333A

PATIENT
  Age: 50 Year
  Sex: Male

DRUGS (5)
  1. AVODART [Suspect]
     Indication: BENIGN PROSTATIC HYPERPLASIA
     Dosage: .5MG PER DAY
     Route: 048
     Dates: start: 20070601
  2. ASPIRIN [Concomitant]
  3. ALPRAZOLAM [Concomitant]
  4. VITAMIN [Concomitant]
  5. CALCIUM CITRATE [Concomitant]

REACTIONS (2)
  - EJACULATION DISORDER [None]
  - LIBIDO DECREASED [None]
